FAERS Safety Report 9440088 (Version 1)
Quarter: 2013Q3

REPORT INFORMATION
  Report Type: Spontaneous
  Country: US (occurrence: US)
  Receive Date: 20130805
  Receipt Date: 20130805
  Transmission Date: 20140515
  Serious: Yes (Hospitalization, Other)
  Sender: FDA-Public Use
  Company Number: US-PFIZER INC-2013223859

PATIENT
  Age: 82 Year
  Sex: Female
  Weight: 37.19 kg

DRUGS (8)
  1. PREMARIN [Suspect]
     Indication: THYROIDECTOMY
     Dosage: 1.25 MG, 1X/DAY
     Route: 048
     Dates: start: 1983
  2. TYLOX [Suspect]
     Indication: BACK PAIN
     Dosage: UNK
  3. TYLOX [Suspect]
     Indication: PAIN IN EXTREMITY
  4. SPIRONOLACTONE [Concomitant]
     Dosage: UNK
     Dates: start: 1992
  5. BUMEX [Concomitant]
     Indication: DIURETIC THERAPY
     Dosage: UNK
     Dates: start: 1992
  6. LANOXIN [Concomitant]
     Dosage: UNK
     Dates: start: 1992
  7. NEURONTIN [Concomitant]
     Dosage: UNK
     Dates: start: 1992
  8. SYNTHROID [Concomitant]
     Dosage: UNK
     Dates: start: 1992

REACTIONS (8)
  - Abdominal pain upper [Unknown]
  - Back pain [Unknown]
  - Hypoacusis [Unknown]
  - Thyroid disorder [Unknown]
  - Memory impairment [Unknown]
  - Malaise [Unknown]
  - Blood potassium increased [Unknown]
  - Drug ineffective [Unknown]
